FAERS Safety Report 12435699 (Version 1)
Quarter: 2016Q2

REPORT INFORMATION
  Report Type: Spontaneous
  Country: US (occurrence: US)
  Receive Date: 20160603
  Receipt Date: 20160603
  Transmission Date: 20160815
  Serious: No
  Sender: FDA-Public Use
  Company Number: US-ROCHE-1616126

PATIENT
  Sex: Female

DRUGS (3)
  1. NORCO [Concomitant]
     Active Substance: ACETAMINOPHEN\HYDROCODONE BITARTRATE
     Indication: PAIN
  2. XELODA [Suspect]
     Active Substance: CAPECITABINE
     Indication: BREAST CANCER METASTATIC
     Dosage: 15 IN MORNING AND 15 AT NIGHT
     Route: 065
     Dates: start: 201501
  3. SOMA [Concomitant]
     Active Substance: CARISOPRODOL
     Indication: PAIN

REACTIONS (1)
  - Ear discomfort [Not Recovered/Not Resolved]
